FAERS Safety Report 12687744 (Version 3)
Quarter: 2017Q3

REPORT INFORMATION
  Report Type: Spontaneous
  Country: HK (occurrence: HK)
  Receive Date: 20160826
  Receipt Date: 20170816
  Transmission Date: 20171127
  Serious: Yes (Death, Life-Threatening, Hospitalization, Other)
  Sender: FDA-Public Use
  Company Number: HK-ACCORD-043383

PATIENT
  Age: 26 Year
  Sex: Male

DRUGS (3)
  1. ETOPOSIDE. [Suspect]
     Active Substance: ETOPOSIDE
     Indication: METASTASES TO SPINE
     Dosage: 6 CYCLES ON DAY 1-5
  2. CISPLATIN. [Suspect]
     Active Substance: CISPLATIN
     Indication: METASTASES TO SPINE
     Dosage: 6 CYCLES ON DAY 1-5
  3. BLEOMYCIN [Suspect]
     Active Substance: BLEOMYCIN SULFATE
     Indication: METASTASES TO SPINE
     Dosage: 6 CYCLES: ON DAY 2, 6, 16 ON 3-WEEK CYCLE

REACTIONS (5)
  - Therapeutic response changed [Unknown]
  - Pneumothorax [Not Recovered/Not Resolved]
  - Respiratory failure [Fatal]
  - Pancytopenia [Unknown]
  - Pneumocystis jirovecii pneumonia [Fatal]

NARRATIVE: CASE EVENT DATE: 20131226
